FAERS Safety Report 6379744-0 (Version None)
Quarter: 2009Q3

REPORT INFORMATION
  Report Type: 
  Country: None (occurrence: None)
  Receive Date: 20090924
  Receipt Date: 20090924
  Transmission Date: 20100115
  Serious: Yes (Other)
  Sender: FDA-Public Use
  Company Number: None

PATIENT
  Age: 74 Year
  Sex: Male
  Weight: 78.0187 kg

DRUGS (3)
  1. NIASPAN [Suspect]
     Indication: BLOOD CHOLESTEROL INCREASED
     Dosage: 1000MG AT BEDTIME PO
     Route: 048
     Dates: start: 20090301, end: 20090920
  2. NIASPAN [Suspect]
     Indication: LOW DENSITY LIPOPROTEIN INCREASED
     Dosage: 1000MG AT BEDTIME PO
     Route: 048
     Dates: start: 20090301, end: 20090920
  3. IBUPROFEN [Concomitant]

REACTIONS (1)
  - RASH [None]
